FAERS Safety Report 11361848 (Version 1)
Quarter: 2015Q3

REPORT INFORMATION
  Report Type: Spontaneous
  Country: US (occurrence: US)
  Receive Date: 20150810
  Receipt Date: 20150810
  Transmission Date: 20151125
  Serious: Yes (Other)
  Sender: FDA-Public Use
  Company Number: US-FRESENIUS KABI-FK201503739

PATIENT
  Age: 54 Year
  Sex: Male

DRUGS (2)
  1. GEMCITABINE [Suspect]
     Active Substance: GEMCITABINE\GEMCITABINE HYDROCHLORIDE
     Indication: PANCREATIC CARCINOMA
     Route: 042
     Dates: start: 201203, end: 201404
  2. REOLYSIN [Suspect]
     Active Substance: PELAREOREP
     Indication: PANCREATIC CARCINOMA
     Route: 042
     Dates: start: 201203, end: 201404

REACTIONS (6)
  - Toxicity to various agents [None]
  - Bile duct obstruction [Unknown]
  - Neutropenia [Unknown]
  - Thrombocytopenia [Unknown]
  - Malignant neoplasm progression [None]
  - Pancreatic carcinoma metastatic [None]
